FAERS Safety Report 7007231-5 (Version None)
Quarter: 2010Q3

REPORT INFORMATION
  Report Type: 
  Country: None (occurrence: None)
  Receive Date: 20100920
  Receipt Date: 20100910
  Transmission Date: 20110219
  Serious: Yes (Hospitalization)
  Sender: FDA-Public Use
  Company Number: WAES 1009USA00856

PATIENT
  Age: 45 Year
  Sex: Female
  Weight: 49.4421 kg

DRUGS (5)
  1. ISENTRESS [Suspect]
     Indication: HIV INFECTION
     Dosage: 400 MG/BID/PO
     Route: 048
     Dates: start: 20090408, end: 20100831
  2. DARUNAVIR UNK [Suspect]
     Indication: HIV INFECTION
     Dosage: 600 MG/BID/PO
     Route: 048
     Dates: start: 20090408, end: 20100831
  3. ETRAVIRINE UNK [Suspect]
     Indication: HIV INFECTION
     Dosage: 200 MG/BID/PO
     Route: 048
     Dates: start: 20090408, end: 20100831
  4. EMTRICITABINE/TENOFOVIR DISOPROXIL FUMARATE [Suspect]
     Indication: HIV INFECTION
     Dosage: 200/300  MG/DAILY/PO
     Route: 048
     Dates: start: 20090408, end: 20100831
  5. RITONAVIR [Suspect]
     Indication: HIV INFECTION
     Dosage: 100 MG/BID/PO
     Route: 048
     Dates: start: 20090408, end: 20100831

REACTIONS (2)
  - HYDRONEPHROSIS [None]
  - OVARIAN CYST [None]
